FAERS Safety Report 5183832-4 (Version None)
Quarter: 2006Q4

REPORT INFORMATION
  Report Type: 
  Country: None (occurrence: None)
  Receive Date: 20061220
  Receipt Date: 20061005
  Transmission Date: 20070319
  Serious: Yes (Hospitalization)
  Sender: FDA-Public Use
  Company Number: US-GLAXOSMITHKLINE-B0441167A

PATIENT
  Age: 56 Year
  Sex: Female
  Weight: 79.8 kg

DRUGS (5)
  1. GW679769 [Suspect]
     Dosage: 150MG PER DAY
     Route: 048
     Dates: start: 20060914, end: 20060914
  2. ZOFRAN [Suspect]
     Dosage: 8MG TWICE PER DAY
     Route: 048
     Dates: start: 20060914, end: 20060916
  3. DEXAMETHASONE [Suspect]
     Dosage: 8MG PER DAY
     Route: 042
     Dates: start: 20060914, end: 20060914
  4. ADRIAMYCIN PFS [Concomitant]
     Indication: BREAST CANCER
     Dates: start: 20060928
  5. CYTOXAN [Concomitant]
     Indication: BREAST CANCER
     Dates: start: 20060928

REACTIONS (2)
  - NAUSEA [None]
  - VOMITING [None]
